FAERS Safety Report 8549271-0 (Version None)
Quarter: 2012Q3

REPORT INFORMATION
  Report Type: 
  Country: None (occurrence: None)
  Receive Date: 20120730
  Receipt Date: 20120723
  Transmission Date: 20120928
  Serious: Yes (Other)
  Sender: FDA-Public Use
  Company Number: DE-UCBSA-057592

PATIENT
  Age: 53 Year
  Sex: Female

DRUGS (9)
  1. LYRICA [Concomitant]
  2. KEPPRA [Suspect]
     Indication: EPILEPSY
     Dosage: DAILY DOSE: 750 MG; 0-250-500MG
     Dates: start: 20110801
  3. LEVOTHYROXINE SODIUM [Concomitant]
     Dosage: FOR 10 YEARS
  4. KEPPRA [Suspect]
     Indication: HYPEREXPLEXIA
     Dosage: DAILY DOSE: 750 MG; 0-250-500MG
     Dates: start: 20110801
  5. VALPROIC ACID [Concomitant]
     Dosage: DAILY DOSE:1500MG
  6. CLOBAZAM [Concomitant]
  7. TRILEPTAL [Concomitant]
  8. VALPROATE SODIUM [Concomitant]
  9. OXCARBAZEPINE [Concomitant]

REACTIONS (7)
  - SKIN DISORDER [None]
  - SKIN DISCOLOURATION [None]
  - ALOPECIA [None]
  - VISUAL IMPAIRMENT [None]
  - SKIN PAPILLOMA [None]
  - SLOW SPEECH [None]
  - HYPEREXPLEXIA [None]
